FAERS Safety Report 5067458-9 (Version None)
Quarter: 2006Q3

REPORT INFORMATION
  Report Type: 
  Country: None (occurrence: None)
  Receive Date: 20060731
  Receipt Date: 20060721
  Transmission Date: 20061208
  Serious: Yes (Hospitalization, Other)
  Sender: FDA-Public Use
  Company Number: 200612772BCC

PATIENT
  Age: 58 Year
  Sex: Male
  Weight: 62.1428 kg

DRUGS (2)
  1. GENUINE BAYER GELCAPS (ACETYLSALICYLIC ACID) [Suspect]
     Indication: MYOCARDIAL INFARCTION
     Dosage: 325 MG, ORAL
     Route: 048
  2. EXTRA STRENGTH BAYER GELCAPS (ACETYLSALICYLIC ACID) [Suspect]
     Indication: ISCHAEMIC HEART DISEASE PROPHYLAXIS
     Dosage: 250 MG, QD, ORAL
     Route: 048
     Dates: start: 20020101

REACTIONS (3)
  - BLOOD PRESSURE DIASTOLIC DECREASED [None]
  - HEART RATE DECREASED [None]
  - MYOCARDIAL INFARCTION [None]
